FAERS Safety Report 9429955 (Version 1)
Quarter: 2013Q3

REPORT INFORMATION
  Report Type: Spontaneous
  Country: US (occurrence: US)
  Receive Date: 20130730
  Receipt Date: 20130730
  Transmission Date: 20140515
  Serious: No
  Sender: FDA-Public Use
  Company Number: US-ABBOTT-13P-163-1072637-00

PATIENT
  Sex: Male
  Weight: 136.2 kg

DRUGS (4)
  1. NIASPAN (COATED) [Suspect]
     Indication: BLOOD CHOLESTEROL
     Dates: start: 2009
  2. METFORMIN [Concomitant]
     Indication: PRODUCT USED FOR UNKNOWN INDICATION
  3. HUMALOG [Concomitant]
     Indication: PRODUCT USED FOR UNKNOWN INDICATION
  4. DECLINED LONG LIST [Concomitant]
     Indication: PRODUCT USED FOR UNKNOWN INDICATION

REACTIONS (2)
  - Pruritus [Unknown]
  - Flushing [Unknown]
